FAERS Safety Report 21182145 (Version 1)
Quarter: 2022Q3

REPORT INFORMATION
  Report Type: Spontaneous
  Country: US (occurrence: US)
  Receive Date: 20220807
  Receipt Date: 20220807
  Transmission Date: 20221027
  Serious: Yes (Hospitalization, Disabling, Other)
  Sender: FDA-Public Use
  Company Number: US-MERCK-0503USA02351

PATIENT
  Sex: Female
  Weight: 63.503 kg

DRUGS (9)
  1. VIOXX [Suspect]
     Active Substance: ROFECOXIB
     Indication: Spinal disorder
     Dosage: 25-50
     Route: 048
     Dates: start: 200101, end: 20030303
  2. PREMARIN [Concomitant]
     Active Substance: ESTROGENS, CONJUGATED
     Indication: Hot flush
     Dosage: 1.25 MG, QD
     Route: 065
     Dates: start: 19760101
  3. TYLENOL [Concomitant]
     Active Substance: ACETAMINOPHEN
     Indication: Product used for unknown indication
     Dosage: UNK
     Route: 065
     Dates: start: 19730101
  4. DILANTIN [Suspect]
     Active Substance: PHENYTOIN
     Indication: Product used for unknown indication
     Dosage: UNK
     Route: 065
     Dates: start: 20030301, end: 20040204
  5. DILANTIN [Suspect]
     Active Substance: PHENYTOIN
     Dates: start: 20040205, end: 20040205
  6. LORTAB [Concomitant]
     Active Substance: ACETAMINOPHEN\HYDROCODONE BITARTRATE
     Indication: Product used for unknown indication
     Dosage: 7.5-22.5
     Route: 065
  7. NEURONTIN [Concomitant]
     Active Substance: GABAPENTIN
     Indication: Product used for unknown indication
     Dosage: 100 MG, TID
     Route: 065
  8. PREVACID [Concomitant]
     Active Substance: LANSOPRAZOLE
     Indication: Product used for unknown indication
     Dosage: 30 MG, QD
     Route: 065
  9. CELEBREX [Concomitant]
     Active Substance: CELECOXIB
     Indication: Product used for unknown indication
     Dosage: UNK
     Route: 065
     Dates: start: 20020101, end: 20020416

REACTIONS (70)
  - Ischaemic stroke [Not Recovered/Not Resolved]
  - Depression [Unknown]
  - Intentional overdose [Unknown]
  - Seizure [Not Recovered/Not Resolved]
  - Gastric ulcer [Unknown]
  - Oesophageal disorder [Unknown]
  - Sleep apnoea syndrome [Unknown]
  - Cardiac disorder [Unknown]
  - Suicide attempt [Recovering/Resolving]
  - Headache [Not Recovered/Not Resolved]
  - Pain [Unknown]
  - Transient ischaemic attack [Unknown]
  - Fall [Unknown]
  - Chronic obstructive pulmonary disease [Unknown]
  - Vomiting [Unknown]
  - Constipation [Unknown]
  - Tremor [Unknown]
  - Limb injury [Unknown]
  - Feeling abnormal [Unknown]
  - Cervical radiculopathy [Unknown]
  - Mental status changes [Unknown]
  - Pain [Unknown]
  - Cardiac ventricular thrombosis [Unknown]
  - Arrhythmia [Unknown]
  - Chest pain [Unknown]
  - Urinary tract infection [Unknown]
  - Pruritus [Unknown]
  - Rotator cuff syndrome [Unknown]
  - Nerve injury [Unknown]
  - Gastrointestinal disorder [Unknown]
  - Hyperkalaemia [Unknown]
  - Hyperlipidaemia [Unknown]
  - Hepatic enzyme increased [Unknown]
  - Renal failure [Unknown]
  - Hypoperfusion [Unknown]
  - Hypovolaemia [Unknown]
  - Spinal stenosis [Unknown]
  - Fatigue [Unknown]
  - Cerebrovascular accident [Unknown]
  - Generalised anxiety disorder [Unknown]
  - Personality disorder [Unknown]
  - Atrioventricular block second degree [Unknown]
  - Arterial spasm [Unknown]
  - Liver function test abnormal [Unknown]
  - Myocardial infarction [Unknown]
  - Chest pain [Unknown]
  - Transient ischaemic attack [Unknown]
  - Chest discomfort [Unknown]
  - Arthralgia [Unknown]
  - Dyspnoea [Unknown]
  - Coronary artery disease [Unknown]
  - Conversion disorder [Unknown]
  - Anxiety disorder [Unknown]
  - Spinal disorder [Unknown]
  - Cerebral infarction [Unknown]
  - Cerebrovascular accident [Unknown]
  - Eye contusion [Unknown]
  - Cataract [Unknown]
  - Vomiting [Unknown]
  - Nausea [Unknown]
  - Fatigue [Unknown]
  - Nausea [Unknown]
  - Headache [Unknown]
  - Ataxia [Unknown]
  - Parkinsonism [Unknown]
  - Cervicobrachial syndrome [Unknown]
  - Hiatus hernia [Unknown]
  - Nausea [Unknown]
  - Vomiting [Unknown]
  - Ventricular dysfunction [Unknown]

NARRATIVE: CASE EVENT DATE: 20010310
